FAERS Safety Report 7443801-8 (Version None)
Quarter: 2011Q2

REPORT INFORMATION
  Report Type: 
  Country: None (occurrence: None)
  Receive Date: 20110428
  Receipt Date: 20110421
  Transmission Date: 20111010
  Serious: Yes (Other)
  Sender: FDA-Public Use
  Company Number: JP-MERCK-1102USA00435

PATIENT
  Age: 74 Year
  Sex: Male
  Weight: 73 kg

DRUGS (8)
  1. HYZAAR [Suspect]
     Indication: HYPERTENSION
     Route: 048
     Dates: start: 20080218, end: 20110117
  2. PEPCID RPD [Concomitant]
     Route: 048
     Dates: start: 20100208, end: 20110117
  3. METHYCOBAL [Concomitant]
     Indication: NEUROPATHY PERIPHERAL
     Route: 065
     Dates: start: 20040306, end: 20110117
  4. URSO 250 [Concomitant]
     Route: 048
     Dates: start: 20041028, end: 20110117
  5. ATELEC [Suspect]
     Indication: HYPERTENSION
     Route: 048
     Dates: start: 20070912, end: 20110117
  6. SHAKUYAKU-KANZO-TO [Concomitant]
     Route: 048
     Dates: start: 20100311, end: 20110117
  7. EPL [Concomitant]
     Route: 048
     Dates: start: 20050609, end: 20110117
  8. VESICARE [Concomitant]
     Route: 048
     Dates: start: 20071220, end: 20110117

REACTIONS (1)
  - MYALGIA [None]
